FAERS Safety Report 9355975 (Version 2)
Quarter: 2013Q3

REPORT INFORMATION
  Report Type: Spontaneous
  Country: US (occurrence: US)
  Receive Date: 20130619
  Receipt Date: 20130812
  Transmission Date: 20140515
  Serious: No
  Sender: FDA-Public Use
  Company Number: US-ROXANE LABORATORIES, INC.-2013-RO-00994RO

PATIENT
  Sex: Female

DRUGS (1)
  1. FLECAINIDE [Suspect]
     Indication: SUPRAVENTRICULAR TACHYCARDIA
     Dosage: 100 MG
     Route: 048
     Dates: start: 201304, end: 20130614

REACTIONS (4)
  - Drug ineffective [Not Recovered/Not Resolved]
  - Vision blurred [Recovered/Resolved]
  - Headache [Recovered/Resolved]
  - Product quality issue [Unknown]
